FAERS Safety Report 7832919-3 (Version None)
Quarter: 2011Q4

REPORT INFORMATION
  Report Type: 
  Country: None (occurrence: None)
  Receive Date: 20111024
  Receipt Date: 20111019
  Transmission Date: 20120403
  Serious: Yes (Death, Life-Threatening)
  Sender: FDA-Public Use
  Company Number: FR-PFIZER INC-2011251190

PATIENT
  Age: 58 Year
  Sex: Male

DRUGS (16)
  1. CISPLATIN [Suspect]
     Indication: LUNG SQUAMOUS CELL CARCINOMA STAGE UNSPECIFIED
     Dosage: UNK
     Route: 042
     Dates: start: 20110803, end: 20110803
  2. NEBIVOLOL [Concomitant]
     Dosage: 5 MG, 1X/DAY
  3. MEDROL [Concomitant]
     Dosage: 110 MG, 1X/DAY
  4. PRIMPERAN TAB [Concomitant]
     Indication: NAUSEA
     Dosage: 10 MG, 3X/DAY
  5. MORPHINE SULFATE [Concomitant]
     Indication: PAIN
     Dosage: UNKNOWN
  6. ATARAX [Concomitant]
     Dosage: 50 MG, 1X/DAY
     Dates: start: 20110907
  7. PARACETAMOL [Concomitant]
     Indication: PAIN
     Dosage: UNKNOWN
  8. PAROXETINE HCL [Concomitant]
     Dosage: 20 MG, 1X/DAY
  9. INNOHEP [Concomitant]
     Dosage: 0.9 ML, 1X/DAY
  10. CISPLATIN [Suspect]
     Dosage: 75 MG/M2 (150 MG), CYCLIC
     Route: 042
     Dates: start: 20110905, end: 20110905
  11. GEMCITABINE [Suspect]
     Indication: LUNG SQUAMOUS CELL CARCINOMA STAGE UNSPECIFIED
     Dosage: 1250 MG/M2 (2.5 G), SINGLE
     Route: 042
     Dates: start: 20110905, end: 20110905
  12. RAMIPRIL [Concomitant]
     Dosage: 2.5 MG, 1X/DAY
  13. NICOPATCH [Concomitant]
     Dosage: 21 MG, ONE PATCH PER DAY
  14. MORPHINE SULFATE [Concomitant]
     Dosage: 30 MG, 1X/DAY
  15. LYRICA [Suspect]
     Indication: PAIN
     Dosage: UNK
     Route: 048
     Dates: start: 20110901, end: 20110901
  16. POLYETHYLENE GLYCOL [Concomitant]
     Dosage: UNK
     Dates: start: 20110907

REACTIONS (3)
  - LUNG SQUAMOUS CELL CARCINOMA STAGE UNSPECIFIED [None]
  - MYOCARDIAL INFARCTION [None]
  - DISEASE PROGRESSION [None]
